FAERS Safety Report 12249392 (Version 2)
Quarter: 2016Q2

REPORT INFORMATION
  Report Type: Report from Study
  Country: US (occurrence: US)
  Receive Date: 20160408
  Receipt Date: 20160505
  Transmission Date: 20160815
  Serious: Yes (Other)
  Sender: FDA-Public Use
  Company Number: US-PFIZER INC-2016198280

PATIENT

DRUGS (2)
  1. TETRACYCLINE HCL [Suspect]
     Active Substance: TETRACYCLINE HYDROCHLORIDE
     Indication: PYELONEPHRITIS
     Dosage: AVERAGING 2.4 G (RANGE, 1.0 TO 3.5 G), DAILY
     Route: 064
  2. SULFISOXAZOLE [Suspect]
     Active Substance: SULFISOXAZOLE
     Dosage: UNK
     Route: 064

REACTIONS (2)
  - Maternal exposure during pregnancy [Unknown]
  - Premature baby [Unknown]
